FAERS Safety Report 5490778-0 (Version None)
Quarter: 2007Q4

REPORT INFORMATION
  Report Type: 
  Country: None (occurrence: None)
  Receive Date: 20071019
  Receipt Date: 20071015
  Transmission Date: 20080405
  Serious: Yes (Hospitalization)
  Sender: FDA-Public Use
  Company Number: US-ABBOTT-07P-163-0420589-00

PATIENT
  Age: 45 Year
  Sex: Female

DRUGS (2)
  1. E.E.S. 400 ERYTHROMYCIN ETHYLSUCCINATE [Suspect]
     Indication: RHINITIS
     Route: 048
  2. E.E.S. 400 ERYTHROMYCIN ETHYLSUCCINATE [Suspect]
     Indication: PRODUCTIVE COUGH

REACTIONS (1)
  - HEPATOTOXICITY [None]
